FAERS Safety Report 9825075 (Version 1)
Quarter: 2013Q4

REPORT INFORMATION
  Report Type: Spontaneous
  Country: US (occurrence: None)
  Receive Date: 20131028
  Receipt Date: 20131028
  Transmission Date: 20140711
  Serious: No
  Sender: FDA-Public Use
  Company Number: 2013US002281

PATIENT
  Age: 60 Year
  Sex: Male
  Weight: 73 kg

DRUGS (13)
  1. ICLUSIG [Suspect]
     Indication: CHRONIC MYELOID LEUKAEMIA
     Dosage: 45 MG, QD, ORAL
     Route: 048
     Dates: start: 20130603, end: 201307
  2. RANITIDINE (RANITIDINE) [Concomitant]
  3. ULORIC (FEBUXOSTAT) [Concomitant]
  4. ENALAPRIL (ENALAPRIL) [Concomitant]
  5. HYDROXYUREA (HYDROXYUREA) [Concomitant]
  6. NIACIN (NIACIN) [Concomitant]
  7. SIMVASTATIN (SIMVASTATIN) [Concomitant]
  8. HYDROCODONE (HYDROCODONE) [Concomitant]
  9. CYMBALTA (DULOXETINE HYDROCHLORIDE) [Concomitant]
  10. ALLOPURINOL (ALLOPURINOL) [Concomitant]
  11. COLCRYS (COLCHICINE) [Concomitant]
  12. TIZANIDINE (TIZANIDINE) [Concomitant]
  13. CHOLESTYRAMINE (CHOLESTYRAMINE) [Concomitant]

REACTIONS (2)
  - Red blood cell count decreased [None]
  - Platelet count decreased [None]
